FAERS Safety Report 21824169 (Version 2)
Quarter: 2023Q1

REPORT INFORMATION
  Report Type: Spontaneous
  Country: US (occurrence: US)
  Receive Date: 20230105
  Receipt Date: 20230207
  Transmission Date: 20230417
  Serious: No
  Sender: FDA-Public Use
  Company Number: US-PFIZER INC-202300004196

PATIENT
  Age: 65 Year
  Sex: Female
  Weight: 54.43 kg

DRUGS (1)
  1. LEVOXYL [Suspect]
     Active Substance: LEVOTHYROXINE SODIUM
     Indication: Thyroidectomy
     Dosage: 75 UG
     Dates: end: 20221213

REACTIONS (1)
  - Off label use [Unknown]
